FAERS Safety Report 7769469-9 (Version None)
Quarter: 2011Q3

REPORT INFORMATION
  Report Type: 
  Country: None (occurrence: None)
  Receive Date: 20110922
  Receipt Date: 20110323
  Transmission Date: 20111222
  Serious: Yes (Hospitalization, Other)
  Sender: FDA-Public Use
  Company Number: US-ASTRAZENECA-2011SE16538

PATIENT
  Age: 29 Year
  Sex: Female
  Weight: 104.3 kg

DRUGS (4)
  1. LAMICTAL [Concomitant]
  2. SEROQUEL [Suspect]
     Route: 048
     Dates: start: 20101001
  3. LITHIUM CARBONATE [Concomitant]
  4. SEROQUEL [Suspect]
     Indication: BIPOLAR DISORDER
     Route: 048
     Dates: start: 20070101, end: 20091201

REACTIONS (3)
  - WEIGHT INCREASED [None]
  - MANIA [None]
  - DRUG DOSE OMISSION [None]
